FAERS Safety Report 9171278 (Version 1)
Quarter: 2013Q1

REPORT INFORMATION
  Report Type: Spontaneous
  Country: US (occurrence: None)
  Receive Date: 20130318
  Receipt Date: 20130318
  Transmission Date: 20140127
  Serious: No
  Sender: FDA-Public Use
  Company Number: None

PATIENT
  Sex: Male
  Weight: 114.31 kg

DRUGS (1)
  1. EFFEXOR [Suspect]

REACTIONS (3)
  - Depression [None]
  - Anxiety [None]
  - Product substitution issue [None]
